FAERS Safety Report 16868202 (Version 2)
Quarter: 2019Q4

REPORT INFORMATION
  Report Type: Spontaneous
  Country: US (occurrence: US)
  Receive Date: 20190930
  Receipt Date: 20191025
  Transmission Date: 20200122
  Serious: No
  Sender: FDA-Public Use
  Company Number: US-PFIZER INC-2019414850

PATIENT
  Sex: Female

DRUGS (1)
  1. ALPRAZOLAM. [Suspect]
     Active Substance: ALPRAZOLAM
     Dosage: 0.25 MG, 4X/DAY

REACTIONS (4)
  - Drug ineffective [Unknown]
  - Anxiety [Unknown]
  - Panic attack [Unknown]
  - Intentional product misuse [Unknown]
